FAERS Safety Report 8815948 (Version 1)
Quarter: 2012Q4

REPORT INFORMATION
  Report Type: 
  Country: US (occurrence: US)
  Receive Date: 20120928
  Receipt Date: 20120928
  Transmission Date: 20130627
  Serious: Yes (Death)
  Sender: FDA-Public Use
  Company Number: US-ROCHE-1129732

PATIENT
  Age: 60 Year
  Sex: Female

DRUGS (6)
  1. HERCEPTIN [Suspect]
     Indication: OVARIAN CANCER
     Dosage: IN 250 cc NS IUPB 330-400
     Route: 065
  2. CARBOPLATIN [Suspect]
     Indication: OVARIAN CANCER
     Dosage: 250 cc NS
     Route: 065
  3. SALINE FLUSH [Concomitant]
     Dosage: 5 cc
     Route: 065
  4. NORMAL SALINE [Concomitant]
     Dosage: 350 cc
     Route: 065
  5. ANZEMET [Concomitant]
     Route: 065
  6. DECADRON [Concomitant]
     Route: 065

REACTIONS (2)
  - Death [Fatal]
  - Syncope [Unknown]
